FAERS Safety Report 15010056 (Version 1)
Quarter: 2018Q2

REPORT INFORMATION
  Report Type: Spontaneous
  Country: US (occurrence: US)
  Receive Date: 20180614
  Receipt Date: 20180614
  Transmission Date: 20180711
  Serious: No
  Sender: FDA-Public Use
  Company Number: US-PFIZER INC-2018163463

PATIENT
  Age: 57 Year
  Sex: Male
  Weight: 75 kg

DRUGS (1)
  1. SUTENT [Suspect]
     Active Substance: SUNITINIB MALATE
     Indication: COLON CANCER
     Dosage: 50 MG, CYCLIC (1 CAPSULE FOR 4 WEEKS AND THEN TWO WEEKS OFF)

REACTIONS (2)
  - Oral discomfort [Not Recovered/Not Resolved]
  - Product use in unapproved indication [Unknown]
